FAERS Safety Report 4476207-4 (Version None)
Quarter: 2004Q3

REPORT INFORMATION
  Report Type: 
  Country: None (occurrence: None)
  Receive Date: 20040923
  Receipt Date: 20040730
  Transmission Date: 20050211
  Serious: No
  Sender: FDA-Public Use
  Company Number: USA040774087

PATIENT
  Age: 70 Year
  Sex: Female
  Weight: 65 kg

DRUGS (5)
  1. FORTEO [Suspect]
     Indication: OSTEOPOROSIS
     Dosage: 20 UG/1 DAY
     Dates: start: 20031201
  2. EFFEXOR [Concomitant]
  3. ZOCOR [Concomitant]
  4. NEURONTIN [Concomitant]
  5. CALCIUM WITH VITAMIN D [Concomitant]

REACTIONS (5)
  - BLOOD IRON DECREASED [None]
  - CATARACT OPERATION [None]
  - FATIGUE [None]
  - HAEMOGLOBIN DECREASED [None]
  - RED BLOOD CELL SEDIMENTATION RATE INCREASED [None]
